FAERS Safety Report 6993865-0 (Version None)
Quarter: 2010Q3

REPORT INFORMATION
  Report Type: 
  Country: None (occurrence: None)
  Receive Date: 20100917
  Receipt Date: 20100226
  Transmission Date: 20110219
  Serious: Yes (Hospitalization)
  Sender: FDA-Public Use
  Company Number: US-ASTRAZENECA-2007UW08562

PATIENT
  Age: 14509 Day
  Sex: Female
  Weight: 73.9 kg

DRUGS (5)
  1. SEROQUEL [Suspect]
     Indication: SLEEP DISORDER
     Route: 048
     Dates: start: 20000302
  2. SEROQUEL [Suspect]
     Indication: ANXIETY
     Route: 048
     Dates: start: 20000302
  3. ZOLOFT [Concomitant]
     Dosage: 25 MG EVERY DAY AND INCREASE TO 50 MG EVERY DAY
  4. LEXAPRO [Concomitant]
     Dosage: 10-20 MG DAILY
     Route: 048
  5. GLUCOPHAGE [Concomitant]
     Dates: start: 20060912

REACTIONS (2)
  - DIABETES MELLITUS [None]
  - TYPE 2 DIABETES MELLITUS [None]
